FAERS Safety Report 24928779 (Version 1)
Quarter: 2025Q1

REPORT INFORMATION
  Report Type: Spontaneous
  Country: HN (occurrence: HN)
  Receive Date: 20250205
  Receipt Date: 20250205
  Transmission Date: 20250408
  Serious: Yes (Death, Hospitalization)
  Sender: ROCHE
  Company Number: HN-ROCHE-10000197156

PATIENT
  Age: 5 Month
  Sex: Female

DRUGS (1)
  1. EVRYSDI [Suspect]
     Active Substance: RISDIPLAM
     Indication: Spinal muscular atrophy
     Route: 048

REACTIONS (1)
  - Pneumonia [Fatal]
